FAERS Safety Report 13437939 (Version 1)
Quarter: 2017Q2

REPORT INFORMATION
  Report Type: Spontaneous
  Country: GR (occurrence: GR)
  Receive Date: 20170413
  Receipt Date: 20170413
  Transmission Date: 20170830
  Serious: Yes (Other)
  Sender: FDA-Public Use
  Company Number: GR-BAYER-2017-070594

PATIENT
  Age: 65 Year
  Sex: Male

DRUGS (1)
  1. NEXAVAR [Suspect]
     Active Substance: SORAFENIB
     Indication: HEPATOCELLULAR CARCINOMA
     Dosage: UNK
     Dates: start: 2016

REACTIONS (5)
  - Hypertension [None]
  - Alpha 1 foetoprotein increased [None]
  - Pyrexia [None]
  - Hepatocellular carcinoma [None]
  - Portal vein thrombosis [None]

NARRATIVE: CASE EVENT DATE: 2016
